FAERS Safety Report 24916459 (Version 1)
Quarter: 2025Q1

REPORT INFORMATION
  Report Type: Spontaneous
  Country: US (occurrence: US)
  Receive Date: 20250203
  Receipt Date: 20250203
  Transmission Date: 20250408
  Serious: No
  Sender: PAREXEL
  Company Number: US-MARIUS PHARMACEUTICALS, LLC-2025US000213

PATIENT

DRUGS (1)
  1. KYZATREX [Suspect]
     Active Substance: TESTOSTERONE UNDECANOATE
     Indication: Product used for unknown indication

REACTIONS (1)
  - Dehydroepiandrosterone increased [Unknown]
